FAERS Safety Report 10254788 (Version 1)
Quarter: 2014Q2

REPORT INFORMATION
  Report Type: Spontaneous
  Country: GB (occurrence: GB)
  Receive Date: 20140624
  Receipt Date: 20140624
  Transmission Date: 20141212
  Serious: Yes (Other)
  Sender: FDA-Public Use
  Company Number: GB-MYLANLABS-2014S1013870

PATIENT
  Age: 74 Year
  Sex: Male
  Weight: 58 kg

DRUGS (10)
  1. CIPROFLOXACIN [Suspect]
     Indication: PRODUCT USED FOR UNKNOWN INDICATION
     Route: 042
     Dates: start: 20120203, end: 20120208
  2. EPIRUBICIN [Suspect]
     Indication: GASTRIC CANCER
     Dosage: LATEST DOSE PRIOR TO SAE: 08/NOV/2011
     Route: 042
     Dates: start: 20110927
  3. TEMAZEPAM [Suspect]
     Indication: PRODUCT USED FOR UNKNOWN INDICATION
     Route: 048
     Dates: start: 20120203, end: 20120219
  4. BEVACIZUMAB [Suspect]
     Indication: GASTRIC CANCER
     Dosage: LATEST DOSE PRIOR TO SAE: 08/NOV/2011
     Dates: start: 20110927
  5. CISPLATIN [Suspect]
     Indication: GASTRIC CANCER
     Dosage: LATEST DOSE PRIOR TO SAE:08/NOV/2011
     Route: 042
     Dates: start: 20110927
  6. DALTEPARIN [Suspect]
     Indication: PRODUCT USED FOR UNKNOWN INDICATION
     Route: 058
     Dates: start: 20120123, end: 20120219
  7. PARACETAMOL [Suspect]
     Indication: PRODUCT USED FOR UNKNOWN INDICATION
     Route: 042
     Dates: start: 20120123, end: 20120219
  8. SALBUTAMOL [Suspect]
     Indication: PRODUCT USED FOR UNKNOWN INDICATION
     Dates: start: 20120123, end: 20120208
  9. TAZOCIN [Suspect]
     Indication: PRODUCT USED FOR UNKNOWN INDICATION
     Route: 042
     Dates: start: 20120121, end: 20120208
  10. XELODA [Suspect]
     Indication: GASTRIC CANCER
     Dosage: LATEST DOSE PRIOR TO SAE: 29/NOV/2011
     Dates: start: 20110927

REACTIONS (1)
  - Atrial fibrillation [Recovered/Resolved]
